FAERS Safety Report 19506614 (Version 4)
Quarter: 2021Q4

REPORT INFORMATION
  Report Type: Report from Study
  Country: FR (occurrence: FR)
  Receive Date: 20210708
  Receipt Date: 20211119
  Transmission Date: 20220303
  Serious: Yes (Death, Hospitalization, Other)
  Sender: FDA-Public Use
  Company Number: FR-BRISTOL-MYERS SQUIBB COMPANY-BMS-2021-064289

PATIENT
  Age: 80 Year
  Sex: Male

DRUGS (1)
  1. NIVOLUMAB [Suspect]
     Active Substance: NIVOLUMAB
     Indication: Clear cell renal cell carcinoma
     Dosage: 270 MILLIGRAM, Q3WK
     Route: 042
     Dates: start: 20210419, end: 20210510

REACTIONS (5)
  - Malignant neoplasm progression [Fatal]
  - Pneumonia [Not Recovered/Not Resolved]
  - Pericardial effusion [Unknown]
  - Pleural effusion [Unknown]
  - Intentional product use issue [Unknown]

NARRATIVE: CASE EVENT DATE: 20210517
